FAERS Safety Report 4759955-8 (Version None)
Quarter: 2005Q3

REPORT INFORMATION
  Report Type: 
  Country: None (occurrence: None)
  Receive Date: 20050831
  Receipt Date: 20050831
  Transmission Date: 20060218
  Serious: Yes (Hospitalization)
  Sender: FDA-Public Use
  Company Number: None

PATIENT
  Age: 76 Year
  Sex: Male

DRUGS (7)
  1. LITHIUM      300 MG [Suspect]
     Indication: BIPOLAR DISORDER
     Dosage: 300 MG  DAILY  PO
     Route: 048
  2. LITHIUM -ESKALITH(R)- [Concomitant]
  3. BUPROPION -WELLBUTRIN (R)- [Concomitant]
  4. RAMIPRIL -ALTACE(R)- [Concomitant]
  5. LEVOTHYROXINE -SYNTHROID (R)- [Concomitant]
  6. DILTIAZEM -VARIOUS- [Concomitant]
  7. METOPROLOL [Concomitant]

REACTIONS (7)
  - CEREBROVASCULAR DISORDER [None]
  - DECREASED APPETITE [None]
  - DELIRIUM [None]
  - ORAL INTAKE REDUCED [None]
  - PERSONALITY CHANGE [None]
  - THERAPEUTIC AGENT TOXICITY [None]
  - TREMOR [None]
